FAERS Safety Report 22084207 (Version 1)
Quarter: 2023Q1

REPORT INFORMATION
  Report Type: Report from Study
  Country: FR (occurrence: FR)
  Receive Date: 20230310
  Receipt Date: 20230310
  Transmission Date: 20230417
  Serious: Yes (Hospitalization)
  Sender: FDA-Public Use
  Company Number: FR-UNICANCER-2021000264

PATIENT
  Sex: Male
  Weight: 91 kg

DRUGS (4)
  1. REGORAFENIB [Suspect]
     Active Substance: REGORAFENIB
     Indication: Neuroendocrine carcinoma metastatic
     Dosage: 160MG
     Route: 048
     Dates: start: 20210303
  2. REGORAFENIB [Suspect]
     Active Substance: REGORAFENIB
     Indication: Metastases to liver
  3. AVELUMAB [Suspect]
     Active Substance: AVELUMAB
     Indication: Neuroendocrine carcinoma metastatic
     Dosage: UNK
     Dates: start: 20210319
  4. AVELUMAB [Suspect]
     Active Substance: AVELUMAB
     Indication: Metastases to liver

REACTIONS (3)
  - Pneumonia [None]
  - Hypoxia [None]
  - Pyrexia [Recovered/Resolved]

NARRATIVE: CASE EVENT DATE: 20210313
